FAERS Safety Report 22689247 (Version 6)
Quarter: 2024Q4

REPORT INFORMATION
  Report Type: Spontaneous
  Country: JP (occurrence: JP)
  Receive Date: 20230711
  Receipt Date: 20241214
  Transmission Date: 20250115
  Serious: No
  Sender: AMGEN
  Company Number: JP-AMGEN-JPNSP2023116820

PATIENT
  Sex: Female

DRUGS (1)
  1. REPATHA [Suspect]
     Active Substance: EVOLOCUMAB
     Indication: Hypercholesterolaemia
     Dosage: UNK
     Route: 058

REACTIONS (1)
  - Administration site erythema [Recovered/Resolved]
